FAERS Safety Report 4431999-5 (Version None)
Quarter: 2004Q3

REPORT INFORMATION
  Report Type: 
  Country: None (occurrence: None)
  Receive Date: 20040819
  Receipt Date: 20040804
  Transmission Date: 20050211
  Serious: Yes (Life-Threatening)
  Sender: FDA-Public Use
  Company Number: 04P-144-0269390-00

PATIENT
  Age: 8 Year
  Sex: Male

DRUGS (5)
  1. DEPAKENE [Suspect]
     Indication: EPILEPSY
     Dosage: 200 MG, 4 IN 1 D, PER ORAL
     Route: 048
     Dates: end: 20040517
  2. CLOBAZAM [Suspect]
     Indication: EPILEPSY
     Dosage: 30 MG, 1 IN 1 D, PER ORAL
     Route: 048
     Dates: end: 20040517
  3. OXCARBAZEPINE [Suspect]
     Indication: EPILEPSY
     Dosage: 60 MILLIGRAM/MILLITERS, 12 ML, 1 IN 1 D, PER ORAL
     Route: 048
     Dates: start: 20030501, end: 20040517
  4. ALBUTEROL SULFATE [Concomitant]
  5. BUDESONIDE [Concomitant]

REACTIONS (4)
  - CONDITION AGGRAVATED [None]
  - HEPATITIS [None]
  - METABOLIC DISORDER [None]
  - PROTHROMBIN LEVEL DECREASED [None]
